FAERS Safety Report 23014743 (Version 8)
Quarter: 2024Q3

REPORT INFORMATION
  Report Type: Spontaneous
  Country: US (occurrence: US)
  Receive Date: 20231002
  Receipt Date: 20240711
  Transmission Date: 20241016
  Serious: Yes (Hospitalization, Other)
  Sender: PHARMING GROUP
  Company Number: US-PHARMING-PHAUS2023000718

PATIENT

DRUGS (7)
  1. RUCONEST [Suspect]
     Active Substance: CONESTAT ALFA
     Indication: Hereditary angioedema
     Dosage: 2800 IU, TWICE WEEKLY
     Route: 042
     Dates: start: 201908
  2. RUCONEST [Suspect]
     Active Substance: CONESTAT ALFA
     Dosage: 2800 IU, TWICE WEEKLY
     Route: 042
     Dates: start: 201908
  3. RUCONEST [Suspect]
     Active Substance: CONESTAT ALFA
     Dosage: 2250 IU, TWICE WEEKLY
     Route: 042
     Dates: start: 201908
  4. RUCONEST [Suspect]
     Active Substance: CONESTAT ALFA
     Dosage: UNK
     Dates: start: 201908
  5. RUCONEST [Suspect]
     Active Substance: CONESTAT ALFA
     Dosage: 2250 IU, TWICE WEEKLY
     Route: 042
     Dates: start: 201908
  6. RUCONEST [Suspect]
     Active Substance: CONESTAT ALFA
     Dosage: 2250 IU, TWICE WEEKLY
     Route: 042
     Dates: start: 201908
  7. FIRAZYR [Concomitant]
     Active Substance: ICATIBANT ACETATE
     Indication: Product used for unknown indication

REACTIONS (12)
  - Encephalitis [Recovering/Resolving]
  - Rhinovirus infection [Recovered/Resolved with Sequelae]
  - West Nile viral infection [Unknown]
  - Acute disseminated encephalomyelitis [Recovered/Resolved with Sequelae]
  - Brain oedema [Unknown]
  - Asthenia [Unknown]
  - Weight fluctuation [Unknown]
  - Intentional product use issue [Unknown]
  - Viral infection [Unknown]
  - Underdose [Unknown]
  - Immobile [Unknown]
  - Nausea [Unknown]

NARRATIVE: CASE EVENT DATE: 20230922
